FAERS Safety Report 6979553-5 (Version None)
Quarter: 2010Q3

REPORT INFORMATION
  Report Type: 
  Country: None (occurrence: None)
  Receive Date: 20100910
  Receipt Date: 20100910
  Transmission Date: 20110219
  Serious: Yes (Other)
  Sender: FDA-Public Use
  Company Number: None

PATIENT
  Sex: Female
  Weight: 58.9676 kg

DRUGS (2)
  1. ROBAXIN [Suspect]
     Indication: PAIN
     Dosage: PO
     Route: 048
     Dates: start: 20091018, end: 20100901
  2. METHOCARBAMOL [Suspect]
     Dates: start: 20090902

REACTIONS (3)
  - AREFLEXIA [None]
  - DYSPHAGIA [None]
  - HYPOAESTHESIA ORAL [None]
